FAERS Safety Report 8769887 (Version 2)
Quarter: 2013Q1

REPORT INFORMATION
  Report Type: Spontaneous
  Country: US (occurrence: US)
  Receive Date: 20120905
  Receipt Date: 20130308
  Transmission Date: 20140127
  Serious: Yes (Hospitalization)
  Sender: FDA-Public Use
  Company Number: US-BIOGENIDEC-2012BI033968

PATIENT
  Age: 37 Year
  Sex: Female

DRUGS (1)
  1. AVONEX [Suspect]
     Indication: MULTIPLE SCLEROSIS
     Route: 030
     Dates: start: 20060314, end: 2010

REACTIONS (4)
  - Tooth infection [Recovered/Resolved]
  - Staphylococcal infection [Recovered/Resolved]
  - Tremor [Recovered/Resolved]
  - Multiple sclerosis relapse [Recovered/Resolved]
